FAERS Safety Report 4289993-3 (Version None)
Quarter: 2004Q1

REPORT INFORMATION
  Report Type: 
  Country: None (occurrence: None)
  Receive Date: 20040206
  Receipt Date: 20040129
  Transmission Date: 20041129
  Serious: Yes (Life-Threatening, Hospitalization, Other)
  Sender: FDA-Public Use
  Company Number: PL-SHR-03-015914

PATIENT
  Age: 71 Year
  Sex: Female

DRUGS (14)
  1. CAMPATH [Suspect]
     Indication: CHRONIC LYMPHOCYTIC LEUKAEMIA
     Dosage: 1.5 MG, INTRAVENOUS
     Route: 042
     Dates: start: 20031010, end: 20031010
  2. INHIBACE ^ANDREU^ (CILAZAPRIL) [Concomitant]
  3. BISOPROLOL FUMARATE [Concomitant]
  4. FUROSEMIDE [Concomitant]
  5. ACARD (ACETYLSALICYLIC ACID) [Concomitant]
  6. GLYCERYL TRINITRATE [Concomitant]
  7. DIPHENHYDRAMINE HCL [Concomitant]
  8. PARACETAMOL [Concomitant]
  9. SPIRONOLACTONE [Concomitant]
  10. ... [Concomitant]
  11. TERTENSIF (INDAPAMIDE) [Concomitant]
  12. ... [Concomitant]
  13. MAGNOSIL(MAGNESIUM TRISILICATE) [Concomitant]
  14. ALLOPURINOL [Concomitant]

REACTIONS (9)
  - BRADYCARDIA [None]
  - CARDIAC ARREST [None]
  - LOSS OF CONSCIOUSNESS [None]
  - RESPIRATORY ARREST [None]
  - SCOTOMA [None]
  - SUPRAVENTRICULAR EXTRASYSTOLES [None]
  - SUPRAVENTRICULAR TACHYCARDIA [None]
  - VENTRICULAR EXTRASYSTOLES [None]
  - VISION BLURRED [None]
